FAERS Safety Report 22060231 (Version 1)
Quarter: 2023Q1

REPORT INFORMATION
  Report Type: Spontaneous
  Country: US (occurrence: None)
  Receive Date: 20230303
  Receipt Date: 20230303
  Transmission Date: 20230417
  Serious: No
  Sender: FDA-Public Use
  Company Number: None

PATIENT
  Age: 56 Year
  Sex: Male

DRUGS (1)
  1. TESTOSTERONE [Suspect]
     Active Substance: TESTOSTERONE
     Indication: Hypogonadism
     Dosage: OTHER QUANTITY : 1 TUBE;?FREQUENCY : DAILY;?
     Route: 061

REACTIONS (3)
  - Ligament sprain [None]
  - Product package associated injury [None]
  - Packaging design issue [None]

NARRATIVE: CASE EVENT DATE: 20230302
